FAERS Safety Report 8184189 (Version 7)
Quarter: 2012Q4

REPORT INFORMATION
  Report Type: Report from Study
  Country: JP (occurrence: JP)
  Receive Date: 20111017
  Receipt Date: 20120911
  Transmission Date: 20130627
  Serious: Yes (Hospitalization, Other)
  Sender: FDA-Public Use
  Company Number: PHHO2011JP17258

PATIENT
  Age: 82 Year
  Sex: Male
  Weight: 59 kg

DRUGS (14)
  1. ALISKIREN [Suspect]
     Indication: CARDIAC FAILURE
     Dosage: UNK
     Route: 048
     Dates: start: 20100514
  2. ALISKIREN [Suspect]
     Indication: CARDIAC FAILURE
     Dosage: 150 mg, QD
     Route: 048
     Dates: start: 20100423
  3. ALISKIREN [Suspect]
     Dosage: 150 mg, QD
     Route: 048
     Dates: start: 20110514
  4. ALISKIREN [Suspect]
     Dosage: 300 mg, QD
     Route: 048
     Dates: start: 20100604
  5. COMPARATOR ENALAPRIL [Suspect]
     Indication: CARDIAC FAILURE
     Dosage: 10 mg, Daily
     Route: 048
     Dates: start: 20100319
  6. COMPARATOR ENALAPRIL [Suspect]
     Dosage: 20 mg, Daily
     Route: 048
     Dates: start: 20100409
  7. COMPARATOR ENALAPRIL [Suspect]
     Dosage: 10 mg, Daily
     Route: 048
     Dates: start: 20100423
  8. ARTIST [Concomitant]
     Indication: CARDIAC FAILURE CHRONIC
     Dosage: 10 mg, UNK
     Route: 048
  9. BAYASPIRIN [Concomitant]
     Indication: CARDIAC FAILURE CHRONIC
     Dosage: 100 mg, UNK
     Route: 048
  10. PLAVIX [Concomitant]
     Indication: CARDIAC FAILURE CHRONIC
     Dosage: 75 mg, UNK
     Route: 048
  11. LASIX [Concomitant]
     Indication: CARDIAC FAILURE CHRONIC
     Dosage: 20 mg, UNK
     Route: 048
     Dates: end: 20111008
  12. ANCARON [Concomitant]
     Indication: VENTRICULAR TACHYCARDIA
     Dosage: 100 mg, UNK
     Route: 048
  13. LIVALO KOWA [Concomitant]
     Indication: HYPERLIPIDAEMIA
     Dosage: 2 mg, UNK
     Route: 048
  14. THYRADIN S [Concomitant]
     Indication: HYPOTHYROIDISM
     Dosage: 25 ug, UNK
     Route: 048

REACTIONS (4)
  - Cardiac failure [Recovered/Resolved]
  - Hypotension [Unknown]
  - Gastroenteritis [Recovered/Resolved]
  - Gastritis atrophic [Not Recovered/Not Resolved]
